FAERS Safety Report 18565631 (Version 1)
Quarter: 2020Q4

REPORT INFORMATION
  Report Type: Spontaneous
  Country: US (occurrence: US)
  Receive Date: 20201201
  Receipt Date: 20201201
  Transmission Date: 20210114
  Serious: No
  Sender: FDA-Public Use
  Company Number: US-PFIZER INC-2020471596

PATIENT
  Age: 82 Year
  Sex: Female
  Weight: 92.97 kg

DRUGS (13)
  1. FASLODEX [Concomitant]
     Active Substance: FULVESTRANT
     Dosage: UNK (250 MG/ 5ML SYRINGE)
  2. HYDROCHLOROTHIAZIDE. [Concomitant]
     Active Substance: HYDROCHLOROTHIAZIDE
     Dosage: 12.5 MG
  3. LEVEMIR [Concomitant]
     Active Substance: INSULIN DETEMIR
     Dosage: UNK (100/ML VIAL)
  4. IBRANCE [Suspect]
     Active Substance: PALBOCICLIB
     Indication: BREAST CANCER FEMALE
     Dosage: 125 MG, CYCLIC (DAILY FOR 21 DAYS ON AND 7 DAYS OFF)
     Route: 048
     Dates: start: 201806
  5. ATORVASTATIN CALCIUM. [Concomitant]
     Active Substance: ATORVASTATIN CALCIUM
     Dosage: 10 MG
  6. GABAPENTIN. [Concomitant]
     Active Substance: GABAPENTIN
     Dosage: UNK (100% POWDER)
  7. IRBESARTAN. [Concomitant]
     Active Substance: IRBESARTAN
     Dosage: 150 MG
  8. LATANOPROST. [Concomitant]
     Active Substance: LATANOPROST
     Dosage: UNK (0.005% DROPS)
  9. XGEVA [Concomitant]
     Active Substance: DENOSUMAB
     Dosage: UNK (120 MG/ 1.7 ML VIAL)
  10. GLIPIZIDE. [Concomitant]
     Active Substance: GLIPIZIDE
     Dosage: 10 MG
  11. HERCEPTIN [Concomitant]
     Active Substance: TRASTUZUMAB
     Dosage: 150 MG (150 MG VIAL)
  12. PERJETA [Concomitant]
     Active Substance: PERTUZUMAB
     Dosage: UNK (420 MG/ 14ML VIAL)
  13. METOPROLOL TARTRATE. [Concomitant]
     Active Substance: METOPROLOL TARTRATE
     Dosage: 25 MG

REACTIONS (2)
  - Diarrhoea [Unknown]
  - Alopecia [Unknown]
